FAERS Safety Report 5122612-2 (Version None)
Quarter: 2006Q4

REPORT INFORMATION
  Report Type: 
  Country: None (occurrence: None)
  Receive Date: 20061004
  Receipt Date: 20060922
  Transmission Date: 20070319
  Serious: Yes (Other)
  Sender: FDA-Public Use
  Company Number: 229431

PATIENT
  Age: 35 Year
  Sex: Female

DRUGS (1)
  1. RAPTIVA [Suspect]
     Indication: PSORIASIS
     Dosage: 0.5 ML, 1/WEEK, SUBCUTANEOUS
     Route: 058
     Dates: start: 20060401

REACTIONS (6)
  - ARTHRITIS [None]
  - BONE PAIN [None]
  - MUSCULOSKELETAL PAIN [None]
  - PAIN IN EXTREMITY [None]
  - PRURITUS [None]
  - SKIN ULCER [None]
